FAERS Safety Report 22661854 (Version 1)
Quarter: 2023Q2

REPORT INFORMATION
  Report Type: Spontaneous
  Country: US (occurrence: US)
  Receive Date: 20230630
  Receipt Date: 20230630
  Transmission Date: 20230721
  Serious: Yes (Other)
  Sender: FDA-Public Use
  Company Number: US-TAKEDA-2023TUS061355

PATIENT
  Sex: Female
  Weight: 53 kg

DRUGS (27)
  1. VYVANSE [Suspect]
     Active Substance: LISDEXAMFETAMINE DIMESYLATE
     Indication: Attention deficit hyperactivity disorder
     Dosage: 70 MILLIGRAM
     Route: 065
  2. VYVANSE [Suspect]
     Active Substance: LISDEXAMFETAMINE DIMESYLATE
     Indication: Attention deficit hyperactivity disorder
     Dosage: UNK
     Route: 065
  3. VYVANSE [Suspect]
     Active Substance: LISDEXAMFETAMINE DIMESYLATE
     Indication: Attention deficit hyperactivity disorder
     Dosage: UNK
     Route: 065
  4. ADDERALL [Suspect]
     Active Substance: AMPHETAMINE ASPARTATE\AMPHETAMINE SULFATE\DEXTROAMPHETAMINE SACCHARATE\DEXTROAMPHETAMINE SULFATE
     Indication: Product used for unknown indication
     Dosage: UNK
     Route: 065
  5. MYDAYIS [Suspect]
     Active Substance: AMPHETAMINE ASPARTATE\AMPHETAMINE SULFATE\DEXTROAMPHETAMINE SACCHARATE\DEXTROAMPHETAMINE SULFATE
     Indication: Product used for unknown indication
     Dosage: UNK
     Route: 065
  6. TYLENOL [Concomitant]
     Active Substance: ACETAMINOPHEN
     Dosage: UNK
     Route: 065
  7. HYDROMORPHONE [Concomitant]
     Active Substance: HYDROMORPHONE
     Dosage: 4 MILLIGRAM
     Route: 065
  8. GABAPENTIN [Concomitant]
     Active Substance: GABAPENTIN
     Dosage: 600 MILLIGRAM, QD
     Route: 065
  9. TIZANIDINE HYDROCHLORIDE [Concomitant]
     Active Substance: TIZANIDINE HYDROCHLORIDE
     Dosage: UNK
     Route: 065
  10. BUTALB/ACET/CAFFEINE [Concomitant]
     Dosage: UNK
  11. SELENIUM [Concomitant]
     Active Substance: SELENIUM
     Dosage: UNK
  12. CURCUMIN [Concomitant]
     Active Substance: CURCUMIN
     Dosage: UNK
  13. PEPCID AC [Concomitant]
     Active Substance: FAMOTIDINE
     Dosage: 40 MILLIGRAM
     Route: 065
  14. DEXILANT [Concomitant]
     Active Substance: DEXLANSOPRAZOLE
     Dosage: UNK
  15. VITAMIN A [Concomitant]
     Active Substance: VITAMIN A
     Dosage: UNK
  16. ZINC [Concomitant]
     Active Substance: ZINC
     Dosage: UNK
  17. VITAMIN B3 [Concomitant]
     Active Substance: NIACIN
     Dosage: UNK
  18. OMEGA-3-ACID ETHYL ESTER [Concomitant]
     Active Substance: OMEGA-3-ACID ETHYL ESTERS
     Dosage: 1 MILLIGRAM
     Route: 065
  19. CALCIUM [Concomitant]
     Active Substance: CALCIUM
     Dosage: UNK
  20. VITAMIN D3 [Concomitant]
     Active Substance: CHOLECALCIFEROL
  21. NAC [Concomitant]
     Dosage: UNK
  22. VITAMIN K [Concomitant]
     Active Substance: PHYTONADIONE
     Dosage: UNK
  23. VITAMIN B6 [Concomitant]
     Active Substance: PYRIDOXINE HYDROCHLORIDE
     Dosage: UNK
  24. LUTEIN [Concomitant]
     Active Substance: LUTEIN
     Dosage: UNK
  25. PRASTERONE [Concomitant]
     Active Substance: PRASTERONE
     Dosage: UNK
  26. THORAZINE [Concomitant]
     Active Substance: CHLORPROMAZINE
     Dosage: UNK
  27. BIOTIN [Concomitant]
     Active Substance: BIOTIN
     Dosage: UNK

REACTIONS (3)
  - Surgery [Unknown]
  - Drug ineffective [Unknown]
  - Product physical issue [Unknown]
